FAERS Safety Report 4672816-8 (Version None)
Quarter: 2005Q2

REPORT INFORMATION
  Report Type: 
  Country: None (occurrence: None)
  Receive Date: 20050524
  Receipt Date: 20041119
  Transmission Date: 20051028
  Serious: Yes (Other)
  Sender: FDA-Public Use
  Company Number: PHBS2004CA15757

PATIENT
  Sex: Female

DRUGS (1)
  1. ZOMETA [Suspect]
     Dosage: 4 MG/4 WEEKS
     Route: 042

REACTIONS (5)
  - BONE EROSION [None]
  - IMPAIRED HEALING [None]
  - OSTEOMYELITIS [None]
  - PURULENCE [None]
  - TOOTH EXTRACTION [None]
